FAERS Safety Report 4777264-8 (Version None)
Quarter: 2005Q3

REPORT INFORMATION
  Report Type: 
  Country: None (occurrence: None)
  Receive Date: 20050923
  Receipt Date: 20050913
  Transmission Date: 20060218
  Serious: Yes (Other)
  Sender: FDA-Public Use
  Company Number: PHNU2005PL03178

PATIENT
  Age: 70 Year
  Sex: Female

DRUGS (4)
  1. GLEEVEC [Suspect]
     Dosage: UNKNOWN
     Route: 065
  2. TIALORID [Concomitant]
     Route: 065
  3. POTASSIUM [Concomitant]
     Dosage: UNKNOWN
     Route: 065
  4. INTERFERON [Concomitant]
     Indication: CONDYLOMA ACUMINATUM
     Dosage: UNKNOWN
     Route: 065

REACTIONS (1)
  - VULVAL CANCER [None]
